FAERS Safety Report 19072383 (Version 1)
Quarter: 2021Q1

REPORT INFORMATION
  Report Type: Spontaneous
  Country: US (occurrence: US)
  Receive Date: 20210326
  Receipt Date: 20210326
  Transmission Date: 20210420
  Serious: Yes (Hospitalization)
  Sender: FDA-Public Use
  Company Number: None

PATIENT
  Age: 66 Year
  Sex: Male
  Weight: 139 kg

DRUGS (2)
  1. SULFAMETHOXAZOLE/TRIMETHOPRIM (SULFAMETHOXAZOLE 400 MG/ TRIMETHOPRIM [Suspect]
     Active Substance: SULFAMETHOXAZOLE\TRIMETHOPRIM
     Indication: INFECTION
     Route: 048
     Dates: start: 20201001, end: 20201015
  2. SULFAMETHOXAZOLE/TRIMETHOPRIM (SULFAMETHOXAZOLE 400 MG/ TRIMETHOPRIM [Suspect]
     Active Substance: SULFAMETHOXAZOLE\TRIMETHOPRIM
     Dosage: ?          OTHER FREQUENCY:AM;?
     Route: 048
     Dates: start: 20180601

REACTIONS (1)
  - Renal failure [None]

NARRATIVE: CASE EVENT DATE: 20210107
